FAERS Safety Report 7411168-7 (Version None)
Quarter: 2011Q2

REPORT INFORMATION
  Report Type: 
  Country: None (occurrence: None)
  Receive Date: 20110413
  Receipt Date: 20100330
  Transmission Date: 20111010
  Serious: Yes (Other)
  Sender: FDA-Public Use
  Company Number: US-BRISTOL-MYERS SQUIBB COMPANY-15025018

PATIENT
  Age: 5 Decade
  Sex: Male

DRUGS (5)
  1. BENADRYL [Concomitant]
     Indication: PREMEDICATION
  2. DECADRON [Concomitant]
     Indication: PREMEDICATION
  3. TAXOL [Concomitant]
  4. ALOXI [Concomitant]
     Indication: PREMEDICATION
  5. ERBITUX [Suspect]
     Indication: LUNG NEOPLASM MALIGNANT
     Dosage: 4 MONTH TREATMENT BREAK, GIVEN LOADING DOSE.

REACTIONS (1)
  - CARDIO-RESPIRATORY ARREST [None]
